FAERS Safety Report 26215324 (Version 1)
Quarter: 2025Q4

REPORT INFORMATION
  Report Type: Spontaneous
  Country: EU (occurrence: EU)
  Receive Date: 20251230
  Receipt Date: 20251230
  Transmission Date: 20260118
  Serious: Yes (Other)
  Sender: BAXTER
  Company Number: EU-MLMSERVICE-20251215-PI751976-00128-1

PATIENT
  Age: 29 Year
  Sex: Male

DRUGS (5)
  1. DOXORUBICIN [Suspect]
     Active Substance: DOXORUBICIN
     Indication: Desmoid tumour
     Dosage: FIRST-LINE TREATMENT, PEGYLATED LIPOSOMAL
     Route: 042
  2. DOXORUBICIN [Suspect]
     Active Substance: DOXORUBICIN
     Dosage: DOXORUBICIN IN COMBINATION WITH DACARBAZINE
     Route: 065
  3. SORAFENIB [Suspect]
     Active Substance: SORAFENIB
     Indication: Desmoid tumour
     Dosage: 400 MG
     Route: 048
  4. DACARBAZINE [Suspect]
     Active Substance: DACARBAZINE
     Indication: Desmoid tumour
     Dosage: UNK
     Route: 065
  5. DEXAMETHASONE [Concomitant]
     Active Substance: DEXAMETHASONE
     Indication: Prophylaxis
     Dosage: HIGH DOSE
     Route: 065

REACTIONS (6)
  - Desmoid tumour [Recovered/Resolved]
  - Disease progression [Recovered/Resolved]
  - Vascular compression [Recovered/Resolved]
  - Muscle tightness [Recovered/Resolved]
  - Swelling face [Recovered/Resolved]
  - Infusion related hypersensitivity reaction [Recovered/Resolved]
